FAERS Safety Report 6468922-8 (Version None)
Quarter: 2009Q4

REPORT INFORMATION
  Report Type: 
  Country: None (occurrence: None)
  Receive Date: 20091203
  Receipt Date: 20071108
  Transmission Date: 20100525
  Serious: Yes (Death, Other)
  Sender: FDA-Public Use
  Company Number: NL-ELI_LILLY_AND_COMPANY-US_020483858

PATIENT
  Age: 56 Year
  Sex: Male

DRUGS (10)
  1. GEMCITABINE HCL [Suspect]
     Indication: NON-SMALL CELL LUNG CANCER STAGE IV
     Dosage: 1250 MG/M2, ON DAYS 1 AND 8 REPEATED EVERY 3
     Route: 042
  2. CISPLATIN [Concomitant]
     Indication: NON-SMALL CELL LUNG CANCER STAGE IV
     Dosage: 80 MG/M2,ON DAY 1, REPEATED EVERY 3 WEEKS
     Route: 042
  3. SU5416 [Concomitant]
     Indication: NON-SMALL CELL LUNG CANCER STAGE IV
     Dosage: 85 MG/M2, ON DAYS 4,8,11,15 AND 18
  4. DEXAMETHASONE TAB [Concomitant]
     Indication: ANAPHYLAXIS PROPHYLAXIS
     Dosage: 6-12 HOURS BEFORE THE FIRST TWO INFUSIONS OF SU5416
     Route: 048
  5. DEXAMETHASONE TAB [Concomitant]
     Dosage: 6-12 HOURS BEFORE THE THIRD AND FOURTH INFUSIONS OF SU5416
     Route: 048
  6. DEXAMETHASONE TAB [Concomitant]
     Dosage: 6-12 HOURS BEFORE THE FIFTH AND CONSECUTIVE INFUSIONS OF SU5416
     Route: 048
  7. CLEMASTINE FUMARATE [Concomitant]
     Indication: ALLERGY PROPHYLAXIS
     Dosage: 2 MG, 30 MINUTES BEFORE EACH INFUSION OF SU5416
     Route: 042
  8. ONDANSETRON [Concomitant]
     Indication: VOMITING
     Dosage: 2-3 TIMES DAILY AND IF NECESSARY CONTINUED
     Route: 065
  9. CIMETIDINE [Concomitant]
     Indication: ALLERGY PROPHYLAXIS
     Dosage: 300 MG 2 MG, 30 MINUTES BEFORE EACH INFUSION OF SU5416
     Route: 065
  10. DEXAMETHASONE TAB [Concomitant]
     Indication: VOMITING
     Dosage: 8 MG, 2/D FOR A MAXIMUM OF 2 DAYS
     Route: 065

REACTIONS (2)
  - DEATH [None]
  - TRANSIENT ISCHAEMIC ATTACK [None]
